FAERS Safety Report 8477999-X (Version None)
Quarter: 2012Q2

REPORT INFORMATION
  Report Type: 
  Country: None (occurrence: None)
  Receive Date: 20120629
  Receipt Date: 20120615
  Transmission Date: 20120825
  Serious: No
  Sender: FDA-Public Use
  Company Number: US-ASTRAZENECA-2012SE40615

PATIENT
  Age: 22 Year
  Sex: Male

DRUGS (12)
  1. QUETIAPINE FUMARATE [Suspect]
     Indication: INSOMNIA
     Route: 048
  2. QUETIAPINE FUMARATE [Suspect]
     Route: 048
  3. QUETIAPINE FUMARATE [Suspect]
     Route: 048
  4. QUETIAPINE FUMARATE [Suspect]
     Indication: AFFECTIVE DISORDER
     Route: 048
  5. TEMAZEPAM [Concomitant]
  6. QUETIAPINE FUMARATE [Suspect]
     Indication: AGGRESSION
     Route: 048
  7. QUETIAPINE FUMARATE [Suspect]
     Route: 048
  8. BENZTROPINE MESYLATE [Concomitant]
  9. QUETIAPINE FUMARATE [Suspect]
     Indication: AGITATION
     Route: 048
  10. QUETIAPINE FUMARATE [Suspect]
     Route: 048
  11. QUETIAPINE FUMARATE [Suspect]
     Indication: ANXIETY
     Route: 048
  12. QUETIAPINE FUMARATE [Suspect]
     Route: 048

REACTIONS (3)
  - INSOMNIA [None]
  - THERAPEUTIC RESPONSE UNEXPECTED WITH DRUG SUBSTITUTION [None]
  - AGGRESSION [None]
